FAERS Safety Report 12904054 (Version 2)
Quarter: 2016Q4

REPORT INFORMATION
  Report Type: Spontaneous
  Country: US (occurrence: US)
  Receive Date: 20161102
  Receipt Date: 20161104
  Transmission Date: 20170207
  Serious: No
  Sender: FDA-Public Use
  Company Number: US-PFIZER INC-2016508584

PATIENT
  Age: 74 Year
  Sex: Female

DRUGS (4)
  1. LIPITOR [Suspect]
     Active Substance: ATORVASTATIN CALCIUM
  2. CALADRYL [Suspect]
     Active Substance: CALAMINE\DIPHENHYDRAMINE HYDROCHLORIDE\FERRIC OXIDE RED\PRAMOXINE HYDROCHLORIDE\ZINC OXIDE
  3. DEMEROL [Suspect]
     Active Substance: MEPERIDINE HYDROCHLORIDE
  4. TALWIN [Suspect]
     Active Substance: PENTAZOCINE LACTATE

REACTIONS (1)
  - Drug hypersensitivity [Unknown]
